FAERS Safety Report 9855423 (Version 2)
Quarter: 2014Q1

REPORT INFORMATION
  Report Type: Spontaneous
  Country: US (occurrence: US)
  Receive Date: 20140130
  Receipt Date: 20140130
  Transmission Date: 20141002
  Serious: Yes (Hospitalization)
  Sender: FDA-Public Use
  Company Number: US-JNJFOC-20131212298

PATIENT
  Age: 78 Year
  Sex: Male
  Weight: 88.2 kg

DRUGS (8)
  1. XARELTO [Suspect]
     Indication: CEREBROVASCULAR ACCIDENT PROPHYLAXIS
     Route: 048
     Dates: start: 20131127
  2. XARELTO [Suspect]
     Indication: ATRIAL FIBRILLATION
     Route: 048
     Dates: start: 20131127
  3. ASPIRIN [Suspect]
     Indication: PRODUCT USED FOR UNKNOWN INDICATION
     Route: 065
     Dates: start: 20131106
  4. AMIODARONE [Concomitant]
     Route: 065
     Dates: start: 20131111
  5. COREG [Concomitant]
     Route: 065
  6. LASIX [Concomitant]
     Route: 065
  7. CRESTOR [Concomitant]
     Route: 065
     Dates: start: 20131202
  8. INSULIN [Concomitant]
     Route: 065

REACTIONS (2)
  - Haemoglobin decreased [Unknown]
  - Epistaxis [Recovered/Resolved]
